FAERS Safety Report 17026183 (Version 1)
Quarter: 2019Q4

REPORT INFORMATION
  Report Type: Spontaneous
  Country: US (occurrence: US)
  Receive Date: 20191113
  Receipt Date: 20191113
  Transmission Date: 20200122
  Serious: Yes (Other)
  Sender: FDA-Public Use
  Company Number: US-TEVA-2019-US-1133731

PATIENT
  Sex: Female

DRUGS (1)
  1. QVAR REDIHALER [Suspect]
     Active Substance: BECLOMETHASONE DIPROPIONATE
     Dosage: 2 PUFFS TWICE DAILY
     Route: 055

REACTIONS (3)
  - Animal scratch [Unknown]
  - Inappropriate schedule of product administration [Unknown]
  - Cyst [Unknown]
